FAERS Safety Report 9134657 (Version 2)
Quarter: 2013Q4

REPORT INFORMATION
  Report Type: Spontaneous
  Country: GB (occurrence: GB)
  Receive Date: 20130304
  Receipt Date: 20131028
  Transmission Date: 20140711
  Serious: Yes (Other)
  Sender: FDA-Public Use
  Company Number: GB-NOVOPROD-371823

PATIENT
  Age: 51 Year
  Sex: Female
  Weight: 71.21 kg

DRUGS (8)
  1. LEVEMIR [Suspect]
     Indication: TYPE 1 DIABETES MELLITUS
     Dosage: 1 DF, BID
     Route: 065
  2. HUMALOG [Suspect]
     Indication: PRODUCT USED FOR UNKNOWN INDICATION
     Route: 065
  3. KLARICID /00984601/ [Suspect]
     Indication: SINUSITIS
     Dosage: 500 MG, 1/12 HOURS
     Route: 048
     Dates: start: 20130130, end: 20130205
  4. KLARICID /00984601/ [Suspect]
     Indication: TRACHEITIS
  5. AMITRIPTYLINE [Concomitant]
  6. ASPIRIN [Concomitant]
  7. LISINOPRIL [Concomitant]
  8. SIMVASTATIN [Concomitant]

REACTIONS (6)
  - Anxiety [Recovered/Resolved]
  - Blood pressure increased [Recovered/Resolved]
  - Cognitive disorder [Recovered/Resolved]
  - Drug interaction [Recovered/Resolved]
  - Heart rate increased [Recovered/Resolved]
  - Hypoglycaemia [Recovered/Resolved]
